FAERS Safety Report 25099134 (Version 2)
Quarter: 2025Q2

REPORT INFORMATION
  Report Type: Spontaneous
  Country: US (occurrence: US)
  Receive Date: 20250320
  Receipt Date: 20250403
  Transmission Date: 20250717
  Serious: Yes (Other)
  Sender: TEVA
  Company Number: US-TEVA-VS-3309356

PATIENT
  Age: 54 Year
  Sex: Male

DRUGS (3)
  1. GABAPENTIN [Suspect]
     Active Substance: GABAPENTIN
     Indication: Meralgia paraesthetica
     Route: 065
  2. OXCARBAZEPINE [Suspect]
     Active Substance: OXCARBAZEPINE
     Indication: Complex regional pain syndrome
     Route: 065
     Dates: end: 2013
  3. KETAMINE [Concomitant]
     Active Substance: KETAMINE
     Indication: Complex regional pain syndrome
     Route: 061

REACTIONS (4)
  - Rebound effect [Unknown]
  - Drug ineffective [Unknown]
  - Complex regional pain syndrome [Recovering/Resolving]
  - Hyponatraemia [Unknown]
